FAERS Safety Report 7008243-8 (Version None)
Quarter: 2010Q3

REPORT INFORMATION
  Report Type: 
  Country: None (occurrence: None)
  Receive Date: 20100721
  Receipt Date: 20100414
  Transmission Date: 20110219
  Serious: No
  Sender: FDA-Public Use
  Company Number: LMI-2010-00290

PATIENT
  Age: 45 Year
  Sex: Male
  Weight: 83.9154 kg

DRUGS (2)
  1. ABLAVAR [Suspect]
     Indication: ARTERIOGRAM CAROTID
     Dosage: 12 ML, INTRAVENOUS
     Route: 042
     Dates: start: 20100414, end: 20100414
  2. ABLAVAR [Suspect]
     Indication: CAROTID ARTERY STENOSIS
     Dosage: 12 ML, INTRAVENOUS
     Route: 042
     Dates: start: 20100414, end: 20100414

REACTIONS (3)
  - BURNING SENSATION [None]
  - GENITAL BURNING SENSATION [None]
  - GENITAL ERYTHEMA [None]
